FAERS Safety Report 9315636 (Version 1)
Quarter: 2013Q2

REPORT INFORMATION
  Report Type: Spontaneous
  Country: US (occurrence: US)
  Receive Date: 20130529
  Receipt Date: 20130529
  Transmission Date: 20140414
  Serious: Yes (Other)
  Sender: FDA-Public Use
  Company Number: US-ACTAVIS-2013-09065

PATIENT
  Age: 71 Year
  Sex: Male

DRUGS (1)
  1. METFORMIN HYDROCHLORIDE (UNKNOWN) [Suspect]
     Indication: HYPERGLYCAEMIA
     Dosage: UNK
     Route: 065

REACTIONS (1)
  - Pseudoporphyria [Recovering/Resolving]
